FAERS Safety Report 7259958-8 (Version None)
Quarter: 2011Q1

REPORT INFORMATION
  Report Type: 
  Country: None (occurrence: None)
  Receive Date: 20110130
  Receipt Date: 20101006
  Transmission Date: 20110831
  Serious: No
  Sender: FDA-Public Use
  Company Number: US-ABBOTT-10P-163-0676386-00

PATIENT
  Sex: Female
  Weight: 85.352 kg

DRUGS (14)
  1. PROAIR HFA [Concomitant]
     Indication: ASTHMA
  2. PRILOSEC [Concomitant]
     Indication: PRODUCT USED FOR UNKNOWN INDICATION
  3. MIDRIN [Concomitant]
     Indication: MIGRAINE
  4. XANAX [Concomitant]
     Indication: SLEEP DISORDER
  5. ARAVA [Concomitant]
     Indication: ARTHRITIS
  6. VERAPAMIL [Concomitant]
     Indication: HYPERTENSION
  7. SIMVASTATIN [Concomitant]
     Indication: BLOOD CHOLESTEROL INCREASED
  8. XANAX [Concomitant]
     Indication: ANXIETY
  9. SOMA [Concomitant]
     Indication: FIBROMYALGIA
  10. HUMIRA [Suspect]
     Indication: RHEUMATOID ARTHRITIS
     Dates: start: 20100901
  11. INSULIN [Concomitant]
     Indication: DIABETES MELLITUS
     Dosage: 40 UNITS AM DOSE, 27 UNITS PM
  12. LEVOTHYROXINE SODIUM [Concomitant]
     Indication: HYPOTHYROIDISM
  13. LORTAB [Concomitant]
     Indication: PAIN
  14. OXYGEN [Concomitant]
     Indication: PRODUCT USED FOR UNKNOWN INDICATION
     Dosage: DURING SLEEP

REACTIONS (3)
  - PARAESTHESIA [None]
  - HYPOAESTHESIA [None]
  - INJECTION SITE PAIN [None]
